FAERS Safety Report 16798309 (Version 2)
Quarter: 2019Q3

REPORT INFORMATION
  Report Type: Spontaneous
  Country: BR (occurrence: BR)
  Receive Date: 20190912
  Receipt Date: 20190916
  Transmission Date: 20191005
  Serious: Yes (Other)
  Sender: FDA-Public Use
  Company Number: ALC2019BR000564

PATIENT
  Sex: Male
  Weight: 65 kg

DRUGS (7)
  1. SINVASTACOR [Suspect]
     Active Substance: SIMVASTATIN
     Indication: INFARCTION
     Dosage: 1 DF, QD
     Route: 048
     Dates: start: 2010
  2. CAPILAREMA [Concomitant]
     Indication: HAEMORRHOIDS
     Dosage: 1 DF, QD
     Route: 048
     Dates: start: 1999
  3. ATENOLOL. [Concomitant]
     Active Substance: ATENOLOL
     Indication: INFARCTION
  4. ASPIRINA PREVENT [Concomitant]
     Active Substance: ASPIRIN
     Indication: INFARCTION
     Dosage: 1 DF, QD
     Route: 048
     Dates: start: 2010
  5. VITALUX PLUS [Suspect]
     Active Substance: VITAMINS
     Indication: ASTHENOPIA
     Dosage: 1 DF, QD
     Route: 048
  6. ATENOLOL. [Concomitant]
     Active Substance: ATENOLOL
     Indication: HEART RATE INCREASED
     Dosage: 1 DF, QD
     Route: 048
     Dates: start: 2010
  7. NOVOPRAZOL [Concomitant]
     Indication: ABDOMINAL DISCOMFORT
     Dosage: 1 DF, QD
     Route: 048
     Dates: start: 2010

REACTIONS (2)
  - Cardiomyopathy [Recovered/Resolved]
  - Acute myocardial infarction [Recovered/Resolved]

NARRATIVE: CASE EVENT DATE: 2010
